FAERS Safety Report 23276874 (Version 1)
Quarter: 2023Q4

REPORT INFORMATION
  Report Type: Spontaneous
  Country: US (occurrence: US)
  Receive Date: 20231208
  Receipt Date: 20231208
  Transmission Date: 20240110
  Serious: No
  Sender: FDA-Public Use
  Company Number: US-AMERICAN REGENT INC-2023000843

PATIENT
  Age: 48 Year
  Sex: Female

DRUGS (2)
  1. VENOFER [Suspect]
     Active Substance: IRON SUCROSE
     Indication: Iron deficiency anaemia
     Dosage: 200 MILLIGRAM (DOSE OF 300MG/250ML NORMAL SALINE)
     Route: 042
     Dates: start: 20230403, end: 20230403
  2. VENOFER [Suspect]
     Active Substance: IRON SUCROSE
     Dosage: 100 MILLIGRAM (DOSE OF 300MG/250ML NORMAL SALINE)
     Route: 042
     Dates: start: 20230403, end: 20230403

REACTIONS (5)
  - Rash macular [Unknown]
  - Dizziness [Unknown]
  - Peripheral swelling [Unknown]
  - Product use in unapproved indication [Unknown]
  - Product quality issue [Unknown]

NARRATIVE: CASE EVENT DATE: 20230403
